FAERS Safety Report 4787664-8 (Version None)
Quarter: 2005Q3

REPORT INFORMATION
  Report Type: 
  Country: None (occurrence: None)
  Receive Date: 20050914
  Receipt Date: 20050126
  Transmission Date: 20060218
  Serious: Yes (Death)
  Sender: FDA-Public Use
  Company Number: 163-20785-05010484 (0)

PATIENT
  Age: 60 Year
  Sex: Male

DRUGS (8)
  1. THALOMID [Suspect]
     Indication: EOSINOPHILIC LEUKAEMIA
     Dosage: 100 MG, DAILY, ORAL
     Route: 048
     Dates: start: 20030901, end: 20050101
  2. THALOMID [Suspect]
     Indication: MYELOFIBROSIS
     Dosage: 100 MG, DAILY, ORAL
     Route: 048
     Dates: start: 20030901, end: 20050101
  3. HYDROXYUREA [Concomitant]
  4. CANDESARTAN (CANDESARTAN) [Concomitant]
  5. FUROSEMIDE [Concomitant]
  6. PREDNISONE [Concomitant]
  7. PENICILLIN [Concomitant]
  8. DICLOXACILLIN [Concomitant]

REACTIONS (2)
  - DEATH [None]
  - DISEASE PROGRESSION [None]
